FAERS Safety Report 24963092 (Version 1)
Quarter: 2025Q1

REPORT INFORMATION
  Report Type: Spontaneous
  Country: US (occurrence: US)
  Receive Date: 20250213
  Receipt Date: 20250213
  Transmission Date: 20250409
  Serious: No
  Sender: TAKEDA
  Company Number: US-TAKEDA-2025TUS014193

PATIENT
  Weight: 23.1 kg

DRUGS (6)
  1. PENTASA [Suspect]
     Active Substance: MESALAMINE
     Indication: Colitis ulcerative
     Dosage: 500 MILLIGRAM, BID
     Dates: start: 2023, end: 2024
  2. PENTASA [Suspect]
     Active Substance: MESALAMINE
     Indication: Rectal haemorrhage
  3. LIALDA [Suspect]
     Active Substance: MESALAMINE
     Indication: Product used for unknown indication
     Dosage: 1.2 GRAM, QD
     Dates: start: 2024
  4. MESALAMINE [Suspect]
     Active Substance: MESALAMINE
     Indication: Colitis ulcerative
  5. MESALAMINE [Suspect]
     Active Substance: MESALAMINE
     Indication: Rectal haemorrhage
  6. INFLECTRA [Concomitant]
     Active Substance: INFLIXIMAB-DYYB

REACTIONS (4)
  - No adverse event [Unknown]
  - Product substitution issue [Unknown]
  - Product availability issue [Unknown]
  - Product use complaint [Unknown]
